FAERS Safety Report 7400774-1 (Version None)
Quarter: 2011Q2

REPORT INFORMATION
  Report Type: 
  Country: None (occurrence: None)
  Receive Date: 20110407
  Receipt Date: 20110331
  Transmission Date: 20111010
  Serious: Yes (Hospitalization)
  Sender: FDA-Public Use
  Company Number: B0700809A

PATIENT
  Sex: Female

DRUGS (7)
  1. MAGMITT [Concomitant]
     Dosage: 500MG PER DAY
     Route: 048
  2. ADALAT CC [Concomitant]
     Dosage: 40MG PER DAY
     Route: 048
  3. FOSAMAC [Concomitant]
     Route: 048
  4. CHINESE MEDICINE [Concomitant]
     Dosage: 7.5MG PER DAY
     Route: 048
  5. EPADEL [Concomitant]
     Dosage: 900MG PER DAY
     Route: 048
  6. FERROUS CITRATE [Concomitant]
     Dosage: 100MG PER DAY
     Route: 048
  7. ARIXTRA [Suspect]
     Indication: THROMBOSIS PROPHYLAXIS
     Dosage: 1.5MG PER DAY
     Route: 058
     Dates: start: 20110209, end: 20110213

REACTIONS (12)
  - HEPATIC FUNCTION ABNORMAL [None]
  - BLOOD ALKALINE PHOSPHATASE INCREASED [None]
  - VOMITING [None]
  - BLOOD LACTATE DEHYDROGENASE INCREASED [None]
  - JAUNDICE [None]
  - BILIRUBIN CONJUGATED INCREASED [None]
  - GAMMA-GLUTAMYLTRANSFERASE INCREASED [None]
  - NAUSEA [None]
  - ASPARTATE AMINOTRANSFERASE INCREASED [None]
  - ABDOMINAL PAIN [None]
  - BLOOD BILIRUBIN INCREASED [None]
  - ALANINE AMINOTRANSFERASE INCREASED [None]
